FAERS Safety Report 5080920-8 (Version None)
Quarter: 2006Q3

REPORT INFORMATION
  Report Type: 
  Country: None (occurrence: None)
  Receive Date: 20060810
  Receipt Date: 20060726
  Transmission Date: 20061208
  Serious: Yes (Hospitalization, Other)
  Sender: FDA-Public Use
  Company Number: PHBS2006NO11343

PATIENT
  Age: 64 Year
  Sex: Male

DRUGS (3)
  1. CYCLOSPORINE [Suspect]
     Indication: RENAL TRANSPLANT
     Dates: start: 20030801
  2. PREDNISOLONE TAB [Suspect]
     Indication: RENAL TRANSPLANT
     Dates: start: 20030801
  3. MYCOPHENOLATE MOFETIL [Concomitant]

REACTIONS (3)
  - HAEMATOMA [None]
  - LYMPHOCELE [None]
  - THROMBOTIC MICROANGIOPATHY [None]
